FAERS Safety Report 14604647 (Version 1)
Quarter: 2018Q1

REPORT INFORMATION
  Report Type: Spontaneous
  Country: US (occurrence: US)
  Receive Date: 20180306
  Receipt Date: 20180306
  Transmission Date: 20180509
  Serious: No
  Sender: FDA-Public Use
  Company Number: US-LANNETT COMPANY, INC.-US-2018LAN000019

PATIENT

DRUGS (1)
  1. SUMATRIPTAN. [Suspect]
     Active Substance: SUMATRIPTAN
     Indication: MIGRAINE
     Dosage: 20 MG, (AS NEEDED)
     Route: 045

REACTIONS (9)
  - Nasal discomfort [Unknown]
  - Product packaging issue [Unknown]
  - Product package associated injury [Recovering/Resolving]
  - Skin erosion [Unknown]
  - Drug ineffective [Unknown]
  - Accidental underdose [Unknown]
  - Accidental exposure to product [Unknown]
  - Epistaxis [Recovering/Resolving]
  - Migraine [Unknown]

NARRATIVE: CASE EVENT DATE: 20180108
